FAERS Safety Report 17122283 (Version 3)
Quarter: 2020Q1

REPORT INFORMATION
  Report Type: Spontaneous
  Country: AT (occurrence: AT)
  Receive Date: 20191206
  Receipt Date: 20200131
  Transmission Date: 20200409
  Serious: Yes (Hospitalization)
  Sender: FDA-Public Use
  Company Number: AT-EMD SERONO-9132591

PATIENT
  Age: 38 Year
  Sex: Female
  Weight: 71 kg

DRUGS (3)
  1. MAVENCLAD [Suspect]
     Active Substance: CLADRIBINE
     Indication: MULTIPLE SCLEROSIS
     Dosage: FIRST CYCLE FIRST PART TREATMENT
     Dates: start: 201810
  2. MAVENCLAD [Suspect]
     Active Substance: CLADRIBINE
     Dosage: FIRST CYCLE SECOND PART TREATMENT
     Dates: start: 201811
  3. MAVENCLAD [Suspect]
     Active Substance: CLADRIBINE
     Dosage: SECOND CYCLE FIRST PART TREATMENT
     Dates: start: 201910

REACTIONS (14)
  - Vertigo positional [Recovering/Resolving]
  - Paraesthesia [Recovering/Resolving]
  - Headache [Recovered/Resolved]
  - Nausea [Recovering/Resolving]
  - Migraine [Recovering/Resolving]
  - Aspergillus test positive [Recovered/Resolved]
  - Blood pressure decreased [Recovering/Resolving]
  - Pyrexia [Recovering/Resolving]
  - Diarrhoea [Recovering/Resolving]
  - Hypoaesthesia [Recovering/Resolving]
  - Dizziness [Recovering/Resolving]
  - Fluid intake reduced [Recovering/Resolving]
  - Hypovolaemia [Recovering/Resolving]
  - Urinary tract infection enterococcal [Not Recovered/Not Resolved]

NARRATIVE: CASE EVENT DATE: 20191112
